FAERS Safety Report 11116189 (Version 3)
Quarter: 2015Q3

REPORT INFORMATION
  Report Type: Report from Study
  Country: US (occurrence: US)
  Receive Date: 20150515
  Receipt Date: 20150727
  Transmission Date: 20151125
  Serious: Yes (Hospitalization)
  Sender: FDA-Public Use
  Company Number: US-CELGENEUS-USA-2015051198

PATIENT
  Age: 76 Year
  Sex: Male
  Weight: 94 kg

DRUGS (9)
  1. BLINDED NECUPARANIB [Suspect]
     Active Substance: NECUPARANIB
     Dosage: 6 GRAM
     Route: 050
     Dates: start: 20150424, end: 20150430
  2. ABRAXANE [Suspect]
     Active Substance: PACLITAXEL
     Indication: PANCREATIC CARCINOMA METASTATIC
     Route: 050
     Dates: start: 20150220
  3. GEMCITABINE [Suspect]
     Active Substance: GEMCITABINE\GEMCITABINE HYDROCHLORIDE
     Route: 050
     Dates: start: 20150424, end: 20150424
  4. ABRAXANE [Suspect]
     Active Substance: PACLITAXEL
     Route: 050
     Dates: start: 20150515
  5. FILGRASTIM [Concomitant]
     Active Substance: FILGRASTIM
     Indication: NEUTROPENIA
     Route: 058
     Dates: start: 20150501, end: 20150503
  6. GEMCITABINE [Suspect]
     Active Substance: GEMCITABINE\GEMCITABINE HYDROCHLORIDE
     Indication: PANCREATIC CARCINOMA METASTATIC
     Route: 050
     Dates: start: 20150220
  7. GEMCITABINE [Suspect]
     Active Substance: GEMCITABINE\GEMCITABINE HYDROCHLORIDE
     Route: 050
     Dates: start: 20150515
  8. ABRAXANE [Suspect]
     Active Substance: PACLITAXEL
     Route: 050
     Dates: start: 20150424, end: 20150424
  9. BLINDED NECUPARANIB [Suspect]
     Active Substance: NECUPARANIB
     Indication: PANCREATIC CARCINOMA METASTATIC
     Route: 050
     Dates: start: 20150220

REACTIONS (1)
  - Febrile neutropenia [Recovered/Resolved]

NARRATIVE: CASE EVENT DATE: 20150430
